FAERS Safety Report 4632174-1 (Version None)
Quarter: 2005Q2

REPORT INFORMATION
  Report Type: 
  Country: None (occurrence: None)
  Receive Date: 20050401
  Receipt Date: 20040929
  Transmission Date: 20051028
  Serious: Yes (Death)
  Sender: FDA-Public Use
  Company Number: 04P-163-0275289-00

PATIENT
  Age: 43 Year
  Sex: Male

DRUGS (8)
  1. DEPAKOTE [Suspect]
     Indication: BIPOLAR DISORDER
     Dosage: 250 MG, 5 IN 1 D, PER ORAL
     Route: 048
     Dates: start: 19940101
  2. CLONAZEPAM [Concomitant]
  3. BENZATROPINE MESILATE [Concomitant]
  4. OLANZAPINE [Concomitant]
  5. CALCIUM CARBONATE [Concomitant]
  6. FLUVASTATIN SODIUM [Concomitant]
  7. FLOMAX [Concomitant]
  8. NEUROCHOL N [Concomitant]

REACTIONS (1)
  - PANCREATITIS HAEMORRHAGIC [None]
